FAERS Safety Report 7374959-7 (Version None)
Quarter: 2011Q1

REPORT INFORMATION
  Report Type: 
  Country: None (occurrence: None)
  Receive Date: 20110325
  Receipt Date: 20110311
  Transmission Date: 20110831
  Serious: Yes (Other)
  Sender: FDA-Public Use
  Company Number: PHHY2010BR53050

PATIENT
  Sex: Female

DRUGS (2)
  1. RASILEZ AMLO [Suspect]
     Indication: HYPERTENSION
     Dosage: 1 TABLET (300/10 MG) DAILY
     Route: 048
  2. OLCADIL [Concomitant]
     Indication: INSOMNIA
     Dosage: ONE TABLET (2 MG) DAILY
     Route: 048

REACTIONS (6)
  - SWELLING FACE [None]
  - ERYTHEMA [None]
  - FEELING HOT [None]
  - COUGH [None]
  - BLOOD PRESSURE INCREASED [None]
  - HEADACHE [None]
